FAERS Safety Report 17287966 (Version 4)
Quarter: 2020Q3

REPORT INFORMATION
  Report Type: Report from Study
  Country: US (occurrence: US)
  Receive Date: 20200120
  Receipt Date: 20200923
  Transmission Date: 20201102
  Serious: Yes (Disabling, Other)
  Sender: FDA-Public Use
  Company Number: US-EMD SERONO-9070489

PATIENT
  Age: 77 Year
  Sex: Female
  Weight: 77 kg

DRUGS (11)
  1. MELATONIN [Concomitant]
     Active Substance: MELATONIN
     Indication: PRODUCT USED FOR UNKNOWN INDICATION
  2. SAIZEN [Suspect]
     Active Substance: SOMATROPIN
     Dosage: DRUG REINTRODUCED
     Route: 058
     Dates: start: 20140207
  3. SAIZEN [Suspect]
     Active Substance: SOMATROPIN
     Indication: GROWTH HORMONE DEFICIENCY
     Route: 058
     Dates: start: 20020401
  4. SAIZEN [Suspect]
     Active Substance: SOMATROPIN
     Dosage: DOSE INCREASED
     Route: 058
  5. DHEA [Concomitant]
     Active Substance: PRASTERONE
     Indication: PRODUCT USED FOR UNKNOWN INDICATION
  6. SAIZEN [Suspect]
     Active Substance: SOMATROPIN
     Route: 058
  7. SAIZEN [Suspect]
     Active Substance: SOMATROPIN
     Route: 058
  8. SAIZEN [Suspect]
     Active Substance: SOMATROPIN
     Dosage: DOSE INCREASED
     Route: 058
  9. SAIZEN [Suspect]
     Active Substance: SOMATROPIN
     Route: 058
  10. SAIZEN [Suspect]
     Active Substance: SOMATROPIN
     Indication: PSEUDOHYPOPARATHYROIDISM
     Route: 058
     Dates: start: 20130710
  11. ARMOUR THYROID [Concomitant]
     Active Substance: THYROID, PORCINE
     Indication: PRODUCT USED FOR UNKNOWN INDICATION

REACTIONS (30)
  - Hot flush [Unknown]
  - Malaise [Unknown]
  - Rash [Unknown]
  - Incorrect dose administered [Unknown]
  - Treatment noncompliance [Unknown]
  - Bedridden [Not Recovered/Not Resolved]
  - Hypersomnia [Unknown]
  - Thyroid hormones increased [Unknown]
  - Peripheral swelling [Unknown]
  - Near death experience [Unknown]
  - Overdose [Unknown]
  - Weight increased [Not Recovered/Not Resolved]
  - Disturbance in attention [Unknown]
  - Depressed mood [Unknown]
  - Product selection error [Unknown]
  - Blood pressure increased [Unknown]
  - Hypophagia [Unknown]
  - Confusional state [Unknown]
  - Carpal tunnel syndrome [Unknown]
  - Headache [Unknown]
  - Insomnia [Unknown]
  - Fatigue [Unknown]
  - Cortisol increased [Unknown]
  - Cardiac flutter [Unknown]
  - Feeling abnormal [Unknown]
  - Weight decreased [Unknown]
  - Gait disturbance [Unknown]
  - Road traffic accident [Unknown]
  - Nervousness [Unknown]
  - Abdominal distension [Unknown]

NARRATIVE: CASE EVENT DATE: 201901
